FAERS Safety Report 8618895 (Version 2)
Quarter: 2012Q4

REPORT INFORMATION
  Report Type: 
  Country: US (occurrence: US)
  Receive Date: 20120618
  Receipt Date: 20120829
  Transmission Date: 20130627
  Serious: Yes (Hospitalization)
  Sender: FDA-Public Use
  Company Number: US-BAYER-2012-059037

PATIENT
  Age: 36 Year
  Sex: Female
  Weight: 86.17 kg

DRUGS (20)
  1. YAZ [Suspect]
     Indication: CONTRACEPTION
  2. YAZ [Suspect]
     Indication: DYSMENORRHOEA
  3. YAZ [Suspect]
     Indication: POLYCYSTIC OVARIES
  4. YAZ [Suspect]
     Indication: PELVIC PAIN
  5. YAZ [Suspect]
     Indication: CYST
  6. YASMIN [Suspect]
     Indication: CONTRACEPTION
     Dosage: UNK
     Dates: start: 20080324, end: 20100723
  7. YASMIN [Suspect]
     Indication: DYSMENORRHOEA
  8. YASMIN [Suspect]
     Indication: POLYCYSTIC OVARIES
  9. YASMIN [Suspect]
     Indication: PELVIC PAIN
  10. YASMIN [Suspect]
     Indication: CYST
  11. OCELLA [Suspect]
     Indication: CONTRACEPTION
     Dosage: UNK
     Dates: start: 20080324, end: 20100723
  12. OCELLA [Suspect]
     Indication: DYSMENORRHOEA
  13. OCELLA [Suspect]
     Indication: POLYCYSTIC OVARIES
  14. OCELLA [Suspect]
     Indication: PELVIC PAIN
  15. OCELLA [Suspect]
     Indication: CYST
  16. LORAZEPAM [Concomitant]
     Indication: MENTAL DISORDER
     Dosage: UNK
     Dates: start: 2008
  17. CELEXA [Concomitant]
     Indication: MENTAL DISORDER
     Dosage: 20 mg, UNK
     Dates: start: 20100627, end: 20100723
  18. ADVIL [Concomitant]
     Indication: HEADACHE
     Dosage: 600 mg/ dose, 4 doses
     Dates: start: 20100716
  19. IBUPROFEN [Concomitant]
     Indication: HEADACHE
     Dosage: UNK
     Dates: start: 20100719
  20. VICODIN [Concomitant]
     Indication: HEADACHE
     Dosage: UNK
     Dates: start: 20100719

REACTIONS (7)
  - Transverse sinus thrombosis [None]
  - Cerebrovascular accident [None]
  - Transient ischaemic attack [None]
  - Injury [None]
  - Pain [None]
  - General physical health deterioration [None]
  - Emotional distress [None]
